FAERS Safety Report 5495596-5 (Version None)
Quarter: 2007Q4

REPORT INFORMATION
  Report Type: 
  Country: None (occurrence: None)
  Receive Date: 20071015
  Receipt Date: 20061017
  Transmission Date: 20080405
  Serious: Yes (Hospitalization)
  Sender: FDA-Public Use
  Company Number: S06-USA-04330-01

PATIENT
  Age: 14 Year
  Sex: Male

DRUGS (4)
  1. LEXAPRO [Suspect]
     Indication: DEPRESSION
     Dates: start: 20060901, end: 20061011
  2. LEXAPRO [Suspect]
     Indication: DEPRESSION
     Dates: start: 20061001
  3. LAMICTAL [Suspect]
     Indication: DRUG USE FOR UNKNOWN INDICATION
     Dates: start: 20060901, end: 20061011
  4. LAMICTAL [Suspect]
     Indication: DRUG USE FOR UNKNOWN INDICATION
     Dates: start: 20061001

REACTIONS (3)
  - BLEPHAROSPASM [None]
  - LOSS OF CONSCIOUSNESS [None]
  - TREMOR [None]
